FAERS Safety Report 17528178 (Version 2)
Quarter: 2022Q3

REPORT INFORMATION
  Report Type: Spontaneous
  Country: DK (occurrence: DK)
  Receive Date: 20200311
  Receipt Date: 20220905
  Transmission Date: 20221027
  Serious: Yes (Hospitalization)
  Sender: FDA-Public Use
  Company Number: None

PATIENT
  Age: 44 Year
  Sex: Female

DRUGS (18)
  1. INVEGA [Suspect]
     Active Substance: PALIPERIDONE
     Indication: Schizophrenia
     Route: 048
     Dates: start: 20200203
  2. ARIPIPRAZOLE [Suspect]
     Active Substance: ARIPIPRAZOLE
     Indication: Schizophrenia
     Route: 048
     Dates: start: 2009
  3. POTASSIUM CHLORIDE [Concomitant]
     Active Substance: POTASSIUM CHLORIDE
     Indication: Mineral supplementation
     Dosage: STYRKE: 750 MG
     Route: 048
     Dates: start: 202001
  4. FLUTICASONE PROPIONATE [Concomitant]
     Active Substance: FLUTICASONE PROPIONATE
     Indication: Asthma
     Dosage: STYRKE: 250 UG/DOSIS
     Route: 055
     Dates: start: 202001
  5. LASIX [Concomitant]
     Active Substance: FUROSEMIDE
     Indication: Diuretic therapy
     Dosage: STYRKE: 60 MG
     Route: 048
     Dates: start: 202001
  6. LEVOTHYROXINE [Concomitant]
     Active Substance: LEVOTHYROXINE
     Indication: Hypothyroidism
     Dosage: STYRKE: 50 UG
     Route: 048
     Dates: start: 202001
  7. ALBUTEROL [Concomitant]
     Active Substance: ALBUTEROL
     Indication: Bronchospasm
     Dosage: STYRKE: 1 MG/ML
     Route: 065
     Dates: start: 202001
  8. NICORETTE [Concomitant]
     Active Substance: NICOTINE
     Indication: Smoking cessation therapy
     Dosage: STYRKE: 4 MG, DOSIS: 1 TYGGEGUMMI EFTER BEHOV H JST 24 GANGE DAGLIGT; AS REQUIRED
     Route: 048
     Dates: start: 2019
  9. AIROMIR                            /00139501/ [Concomitant]
     Indication: Asthma
     Dosage: STYRKE: 0.1 MG/DOSIS, DOSIS: 4 PUST EFTER BEHOV H JST 6 GANGE DAGLIG
     Route: 055
     Dates: start: 202001
  10. ACETAMINOPHEN [Concomitant]
     Active Substance: ACETAMINOPHEN
     Indication: Pain
     Dosage: STYRKE: 500 MG
     Route: 048
     Dates: start: 202001
  11. LACTULOSE [Concomitant]
     Active Substance: LACTULOSE
     Indication: Constipation
     Dosage: STYRKE: 600 MG/ML, DOSIS: 15 ML EFTER BEHOV H JST 2 GANGE DAGLIG; AS REQUIRED
     Route: 048
     Dates: start: 202001
  12. OLODATEROL HYDROCHLORIDE\TIOTROPIUM BROMIDE MONOHYDRATE [Concomitant]
     Active Substance: OLODATEROL HYDROCHLORIDE\TIOTROPIUM BROMIDE MONOHYDRATE
     Indication: Asthma
     Dosage: STYRKE: 2.5+2.5 UG
     Route: 055
     Dates: start: 202001
  13. VENTOLINE                          /00139501/ [Concomitant]
     Indication: Asthma
     Dosage: STYRKE: 0.2 MG/DISKOS
     Route: 055
     Dates: start: 202002
  14. PANTOPRAZOLE [Concomitant]
     Active Substance: PANTOPRAZOLE
     Indication: Gastrooesophageal reflux disease
     Route: 048
     Dates: start: 202001
  15. CITALOPRAM [Concomitant]
     Active Substance: CITALOPRAM HYDROBROMIDE
     Indication: Schizophrenia
     Route: 048
     Dates: start: 2010
  16. ORPHENADRINE HYDROCHLORIDE [Concomitant]
     Active Substance: ORPHENADRINE HYDROCHLORIDE
     Indication: Schizophrenia
     Dosage: STRENGTH: 50 MG
     Route: 048
     Dates: start: 2010
  17. CIPRALEX [Concomitant]
     Active Substance: ESCITALOPRAM OXALATE
     Indication: Antidepressant therapy
     Dates: start: 2015
  18. RIVOTRIL [Concomitant]
     Active Substance: CLONAZEPAM
     Indication: Schizophrenia
     Dosage: AS REQUIRED

REACTIONS (3)
  - Pickwickian syndrome [Unknown]
  - Weight increased [Unknown]
  - Dyspnoea [Unknown]
